FAERS Safety Report 22204500 (Version 1)
Quarter: 2023Q2

REPORT INFORMATION
  Report Type: Spontaneous
  Country: HU (occurrence: HU)
  Receive Date: 20230413
  Receipt Date: 20230413
  Transmission Date: 20230721
  Serious: Yes (Hospitalization, Other)
  Sender: FDA-Public Use
  Company Number: HU-ABBVIE-4726151

PATIENT
  Age: 70 Year
  Sex: Male
  Weight: 109 kg

DRUGS (5)
  1. SKYRIZI [Suspect]
     Active Substance: RISANKIZUMAB-RZAA
     Indication: Psoriasis
     Route: 058
  2. SKYRIZI [Suspect]
     Active Substance: RISANKIZUMAB-RZAA
     Dosage: 150 MG EVERY 3 MONTH
     Route: 058
     Dates: start: 20191104, end: 20221129
  3. METFORMIN [Concomitant]
     Active Substance: METFORMIN HYDROCHLORIDE
     Indication: Type 2 diabetes mellitus
     Dosage: 2000 MILLIGRAM
     Route: 048
     Dates: start: 20220414
  4. COVEREX AS KOMB [Concomitant]
     Indication: Hypertension
     Dosage: 5 MG PERINDOPRIL AND 1,25 MG INDAPAMID/TABLET
     Route: 048
     Dates: start: 20220725
  5. CAPOX [Concomitant]
     Indication: Product used for unknown indication

REACTIONS (1)
  - Colon neoplasm [Recovered/Resolved]
